FAERS Safety Report 8197290-9 (Version None)
Quarter: 2012Q1

REPORT INFORMATION
  Report Type: 
  Country: None (occurrence: None)
  Receive Date: 20120309
  Receipt Date: 20120229
  Transmission Date: 20120608
  Serious: Yes (Death)
  Sender: FDA-Public Use
  Company Number: US-PERRIGO-11US011356

PATIENT
  Sex: Male
  Weight: 63.492 kg

DRUGS (14)
  1. SPIRONOLACTONE [Concomitant]
     Indication: PRODUCT USED FOR UNKNOWN INDICATION
     Dosage: 25 MG, QD
     Route: 048
  2. SIMETHICONE 125 MG 428 [Suspect]
     Indication: FLATULENCE
  3. LORAZEPAM [Concomitant]
     Indication: RESTLESSNESS
     Dosage: 0.5 MG Q 4 HRS PRN
     Route: 048
  4. PROCHLORPERAZINE [Concomitant]
     Indication: VOMITING
  5. NIFEDIPINE [Concomitant]
     Indication: PRODUCT USED FOR UNKNOWN INDICATION
     Dosage: 60 MG, QD
     Route: 048
  6. FUROSEMIDE [Concomitant]
     Indication: PRODUCT USED FOR UNKNOWN INDICATION
     Dosage: 80 MG, QD
     Route: 048
  7. HYDROCODONE W/ACETAMINOPHEN 5/325 MG [Concomitant]
     Indication: PAIN
     Dosage: 1 -2 TABLETS Q 4 HRS PRN
     Route: 048
  8. OMEPRAZOLE [Concomitant]
     Indication: PRODUCT USED FOR UNKNOWN INDICATION
     Dosage: 20 MG, QD
     Route: 048
  9. NITROSTAT [Suspect]
     Indication: DYSPNOEA
  10. MORPHINE [Concomitant]
     Indication: PRODUCT USED FOR UNKNOWN INDICATION
     Dosage: UNK
     Route: 065
  11. SIMETHICONE 125 MG 428 [Suspect]
     Indication: ABDOMINAL DISTENSION
     Dosage: 80 MG TID AND AT NIGHT PRN
     Route: 048
  12. NITROSTAT [Suspect]
     Indication: CHEST PAIN
     Dosage: 0.4 MG Q 5 MIN X 3 PRN
     Route: 060
  13. PROCHLORPERAZINE [Concomitant]
     Indication: NAUSEA
     Dosage: 5-10 MG Q 4-6 HRS PRN
     Route: 048
  14. GLIPIZIDE [Concomitant]
     Indication: PRODUCT USED FOR UNKNOWN INDICATION
     Dosage: 10 MG, QD
     Route: 048

REACTIONS (1)
  - ADVERSE REACTION [None]
